FAERS Safety Report 5663714-1 (Version None)
Quarter: 2008Q1

REPORT INFORMATION
  Report Type: 
  Country: None (occurrence: None)
  Receive Date: 20080310
  Receipt Date: 20080225
  Transmission Date: 20080703
  Serious: Yes (Hospitalization)
  Sender: FDA-Public Use
  Company Number: 2008004763

PATIENT
  Age: 9 Year
  Sex: Male
  Weight: 38.1022 kg

DRUGS (2)
  1. LISTERINE AGENT COOL BLUE GLACIER MINT (NO ACTIVE INGREDIENT) [Suspect]
     Indication: DENTAL PLAQUE
     Dosage: 10ML DAILY, RANDOMLY, ORAL
     Route: 048
     Dates: start: 20070915, end: 20071002
  2. CELLCEPT [Concomitant]

REACTIONS (1)
  - MALAISE [None]
